FAERS Safety Report 19174837 (Version 8)
Quarter: 2021Q3

REPORT INFORMATION
  Report Type: Report from Study
  Country: None (occurrence: IL)
  Receive Date: 20210423
  Receipt Date: 20210905
  Transmission Date: 20211014
  Serious: Yes (Hospitalization, Other)
  Sender: FDA-Public Use
  Company Number: IL-ABBVIE-21K-082-3846148-00

PATIENT
  Age: 84 Year
  Sex: Male

DRUGS (5)
  1. RECITAL (CITALOPRAM HYDROBROMIDE) [Suspect]
     Active Substance: CITALOPRAM HYDROBROMIDE
     Indication: ON AND OFF PHENOMENON
     Route: 065
     Dates: start: 202104, end: 202104
  2. DUODOPA [Suspect]
     Active Substance: CARBIDOPA\LEVODOPA
     Indication: PARKINSON^S DISEASE
     Route: 050
     Dates: start: 20190813
  3. DUODOPA [Suspect]
     Active Substance: CARBIDOPA\LEVODOPA
     Dosage: MD 8.0ML, CD 3.0ML/HOUR, ED 1.5ML, NIGHT CONTINUOUS DOSAGE 1.5ML/HR
     Route: 050
  4. GUTRON [Concomitant]
     Active Substance: MIDODRINE HYDROCHLORIDE
     Dosage: DOSAGE WAS INCREASED.
  5. GUTRON [Concomitant]
     Active Substance: MIDODRINE HYDROCHLORIDE
     Indication: BLOOD PRESSURE MEASUREMENT
     Dosage: DOSAGE WAS INCREASED

REACTIONS (23)
  - Seizure [Unknown]
  - Dyskinesia [Unknown]
  - Stoma site erythema [Not Recovered/Not Resolved]
  - Syncope [Not Recovered/Not Resolved]
  - Blood pressure orthostatic decreased [Unknown]
  - Dysphagia [Unknown]
  - Wrong technique in device usage process [Unknown]
  - Electrolyte imbalance [Recovered/Resolved]
  - Urinary tract disorder [Unknown]
  - Fungal infection [Unknown]
  - Dizziness [Unknown]
  - Urinary retention [Recovering/Resolving]
  - Insomnia [Unknown]
  - On and off phenomenon [Recovering/Resolving]
  - Urinary tract infection [Recovering/Resolving]
  - Stoma site rash [Unknown]
  - Tremor [Unknown]
  - Inappropriate schedule of product administration [Unknown]
  - Dyspnoea [Unknown]
  - Syncope [Recovered/Resolved]
  - Pulse abnormal [Unknown]
  - Muscle spasms [Unknown]
  - Malaise [Recovered/Resolved]

NARRATIVE: CASE EVENT DATE: 2021
